FAERS Safety Report 4355822-2 (Version None)
Quarter: 2004Q2

REPORT INFORMATION
  Report Type: 
  Country: None (occurrence: None)
  Receive Date: 20040505
  Receipt Date: 20040422
  Transmission Date: 20050107
  Serious: Yes (Other)
  Sender: FDA-Public Use
  Company Number: 2004027664

PATIENT
  Sex: Female

DRUGS (3)
  1. NEURONTIN [Suspect]
     Indication: CONVULSION
     Dosage: 2400 MG DAILY ORAL
     Route: 048
  2. DONEPEZIL HCL [Suspect]
     Indication: DEMENTIA ALZHEIMER'S TYPE
     Dosage: 5 MG DAILY OPHTHALMIC
     Route: 047
     Dates: start: 20040401
  3. CARBAMAZEPINE [Concomitant]

REACTIONS (6)
  - CARDIAC OPERATION [None]
  - CARDIAC PACEMAKER INSERTION [None]
  - DECREASED APPETITE [None]
  - DEMENTIA ALZHEIMER'S TYPE [None]
  - DIZZINESS [None]
  - INSOMNIA [None]
